FAERS Safety Report 6447173-7 (Version None)
Quarter: 2009Q4

REPORT INFORMATION
  Report Type: 
  Country: None (occurrence: None)
  Receive Date: 20091119
  Receipt Date: 20091111
  Transmission Date: 20100525
  Serious: Yes (Death, Hospitalization)
  Sender: FDA-Public Use
  Company Number: US-PURDUE-USA-2009-0041025

PATIENT
  Sex: Male
  Weight: 79.8 kg

DRUGS (5)
  1. OXYCONTIN [Suspect]
     Indication: ORAL PAIN
     Dosage: 40 MG, DAILY
     Route: 048
     Dates: start: 20090824
  2. OXYCONTIN [Suspect]
     Indication: OROPHARYNGEAL PAIN
  3. BIBW 2992 [INVESTIGATIONAL DRUG] [Suspect]
     Indication: HEAD AND NECK CANCER
     Dosage: 50 MG, DAILY
     Route: 048
     Dates: start: 20090810, end: 20090914
  4. TRAZODONE HCL [Suspect]
     Indication: INSOMNIA
     Dosage: 50 MG, DAILY
     Route: 048
     Dates: start: 20090910
  5. CLINDAMYCIN HYDROCHLORIDE [Concomitant]
     Indication: ORAL INFECTION
     Dosage: 900 MG, DAILY
     Route: 048
     Dates: start: 20090914

REACTIONS (5)
  - CONFUSIONAL STATE [None]
  - HALLUCINATION, AUDITORY [None]
  - OVERDOSE [None]
  - PNEUMONIA [None]
  - WEIGHT DECREASED [None]
